FAERS Safety Report 14905396 (Version 1)
Quarter: 2018Q2

REPORT INFORMATION
  Report Type: Spontaneous
  Country: US (occurrence: US)
  Receive Date: 20180517
  Receipt Date: 20180517
  Transmission Date: 20180711
  Serious: No
  Sender: FDA-Public Use
  Company Number: US-SA-2018SA001088

PATIENT
  Age: 68 Year
  Sex: Female

DRUGS (6)
  1. SOLOSTAR [Suspect]
     Active Substance: DEVICE
     Dates: start: 20171207
  2. LANTUS SOLOSTAR [Suspect]
     Active Substance: INSULIN GLARGINE
     Dosage: DOSE:30 UNIT(S)
     Route: 051
     Dates: start: 20171207
  3. LANTUS SOLOSTAR [Suspect]
     Active Substance: INSULIN GLARGINE
     Dosage: DOSE:30 UNIT(S)
     Route: 051
     Dates: start: 20171207
  4. SOLOSTAR [Suspect]
     Active Substance: DEVICE
     Dates: start: 20171207
  5. SOLOSTAR [Suspect]
     Active Substance: DEVICE
     Dates: start: 20171207
  6. LANTUS SOLOSTAR [Suspect]
     Active Substance: INSULIN GLARGINE
     Dosage: DOSE:30 UNIT(S)
     Route: 051
     Dates: start: 20171207

REACTIONS (3)
  - Blood glucose increased [Unknown]
  - Malaise [Unknown]
  - Device issue [Unknown]

NARRATIVE: CASE EVENT DATE: 201712
